FAERS Safety Report 6635685-2 (Version None)
Quarter: 2010Q1

REPORT INFORMATION
  Report Type: 
  Country: None (occurrence: None)
  Receive Date: 20100312
  Receipt Date: 20100312
  Transmission Date: 20100710
  Serious: Yes (Other)
  Sender: FDA-Public Use
  Company Number: None

PATIENT
  Age: 8 Year
  Sex: Male
  Weight: 28.5766 kg

DRUGS (2)
  1. CONCERTA [Suspect]
     Indication: ATTENTION DEFICIT/HYPERACTIVITY DISORDER
     Dosage: 36MG ONCE A DAY
     Dates: start: 20070601, end: 20100311
  2. CONCERTA [Concomitant]

REACTIONS (15)
  - ABDOMINAL PAIN UPPER [None]
  - AMNESIA [None]
  - ASTHENIA [None]
  - BONE PAIN [None]
  - DECREASED APPETITE [None]
  - DRY SKIN [None]
  - EMOTIONAL DISORDER [None]
  - FEELING ABNORMAL [None]
  - HEADACHE [None]
  - HEART RATE INCREASED [None]
  - INSOMNIA [None]
  - SOCIAL PROBLEM [None]
  - STRESS [None]
  - WEIGHT DECREASED [None]
  - WRONG TECHNIQUE IN DRUG USAGE PROCESS [None]
